FAERS Safety Report 12299878 (Version 1)
Quarter: 2016Q2

REPORT INFORMATION
  Report Type: Spontaneous
  Country: US (occurrence: US)
  Receive Date: 20160425
  Receipt Date: 20160425
  Transmission Date: 20160815
  Serious: Yes (Other)
  Sender: FDA-Public Use
  Company Number: US-BEH-2016061511

PATIENT
  Sex: Female
  Weight: 130 kg

DRUGS (27)
  1. SERTRALINE [Concomitant]
     Active Substance: SERTRALINE HYDROCHLORIDE
  2. DRUG USED IN DIABETES [Concomitant]
     Active Substance: UNSPECIFIED INGREDIENT
  3. PNEUMOVAX 23 [Concomitant]
     Active Substance: PNEUMOCOCCAL VACCINE, POLYVALENT 23
  4. HIZENTRA [Suspect]
     Active Substance: HUMAN IMMUNOGLOBULIN G
     Indication: WHITE BLOOD CELL DISORDER
  5. ADVAIR HFA [Concomitant]
     Active Substance: FLUTICASONE PROPIONATE\SALMETEROL XINAFOATE
  6. ACETAMINOPHEN. [Concomitant]
     Active Substance: ACETAMINOPHEN
  7. SINGULAIR [Concomitant]
     Active Substance: MONTELUKAST SODIUM
  8. XANAX [Concomitant]
     Active Substance: ALPRAZOLAM
  9. LISINOPRIL. [Concomitant]
     Active Substance: LISINOPRIL
  10. VENTOLIN [Concomitant]
     Active Substance: ALBUTEROL SULFATE
  11. TRIAM [Concomitant]
     Active Substance: TRIAMCINOLONE
  12. ITRACONAZOLE. [Concomitant]
     Active Substance: ITRACONAZOLE
  13. HIZENTRA [Suspect]
     Active Substance: HUMAN IMMUNOGLOBULIN G
     Indication: IMMUNODEFICIENCY COMMON VARIABLE
  14. HIZENTRA [Suspect]
     Active Substance: HUMAN IMMUNOGLOBULIN G
     Route: 058
     Dates: start: 20160224
  15. DIPHENHYDRAMINE. [Concomitant]
     Active Substance: DIPHENHYDRAMINE
  16. HYDROXYZINE [Concomitant]
     Active Substance: HYDROXYZINE\HYDROXYZINE HYDROCHLORIDE
  17. DUONEB [Concomitant]
     Active Substance: ALBUTEROL SULFATE\IPRATROPIUM BROMIDE
  18. LMX [Concomitant]
     Active Substance: LIDOCAINE
  19. PRILOSEC [Concomitant]
     Active Substance: OMEPRAZOLE MAGNESIUM
  20. DRUG USED IN DIABETES [Concomitant]
     Active Substance: UNSPECIFIED INGREDIENT
  21. PREDNISONE. [Concomitant]
     Active Substance: PREDNISONE
  22. NYSTAT [Concomitant]
     Active Substance: NYSTATIN
  23. LANSOPRAZOLE. [Concomitant]
     Active Substance: LANSOPRAZOLE
  24. EPIPEN [Concomitant]
     Active Substance: EPINEPHRINE
  25. LASIX [Concomitant]
     Active Substance: FUROSEMIDE
  26. FLUCONAZOLE. [Concomitant]
     Active Substance: FLUCONAZOLE
  27. NORCO [Concomitant]
     Active Substance: ACETAMINOPHEN\HYDROCODONE BITARTRATE

REACTIONS (2)
  - Clostridium difficile infection [Unknown]
  - Urticaria [Recovered/Resolved]
